FAERS Safety Report 12353153 (Version 2)
Quarter: 2016Q2

REPORT INFORMATION
  Report Type: Spontaneous
  Country: US (occurrence: US)
  Receive Date: 20160510
  Receipt Date: 20160518
  Transmission Date: 20160815
  Serious: Yes (Other)
  Sender: FDA-Public Use
  Company Number: US-GILEAD-2016-0212629

PATIENT
  Age: 67 Year
  Sex: Male
  Weight: 90 kg

DRUGS (3)
  1. SOVALDI [Suspect]
     Active Substance: SOFOSBUVIR
     Indication: HEPATITIS C
     Dosage: 400 MG, UNK
     Route: 048
     Dates: start: 20150715, end: 20151230
  2. RIBAVIRIN. [Concomitant]
     Active Substance: RIBAVIRIN
     Indication: HEPATITIS C
     Dosage: 200 MG, BID
     Dates: start: 20150715, end: 20151230
  3. DACLATASVIR. [Concomitant]
     Active Substance: DACLATASVIR
     Indication: HEPATITIS C
     Dosage: 60 MG, UNK
     Dates: start: 20150715, end: 20151230

REACTIONS (1)
  - Hepatocellular carcinoma [Not Recovered/Not Resolved]

NARRATIVE: CASE EVENT DATE: 20160203
